FAERS Safety Report 20602885 (Version 1)
Quarter: 2022Q1

REPORT INFORMATION
  Report Type: Spontaneous
  Country: CN (occurrence: CN)
  Receive Date: 20220316
  Receipt Date: 20220316
  Transmission Date: 20220423
  Serious: Yes (Other)
  Sender: FDA-Public Use
  Company Number: CN-LUNDBECK-DKLU3045413

PATIENT
  Sex: Male

DRUGS (3)
  1. ESCITALOPRAM OXALATE [Suspect]
     Active Substance: ESCITALOPRAM OXALATE
     Indication: Anxiety disorder
     Dosage: UNK
     Route: 048
     Dates: start: 20210902
  2. XIDE [Concomitant]
     Indication: Product used for unknown indication
     Route: 065
  3. Fennaijing [Concomitant]
     Indication: Product used for unknown indication

REACTIONS (2)
  - Mental impairment [Unknown]
  - Memory impairment [Unknown]
